FAERS Safety Report 8156292-9 (Version None)
Quarter: 2012Q1

REPORT INFORMATION
  Report Type: 
  Country: None (occurrence: None)
  Receive Date: 20120103
  Receipt Date: 20111004
  Transmission Date: 20120608
  Serious: No
  Sender: FDA-Public Use
  Company Number: AE-2011-002068

PATIENT
  Age: 62 Year
  Sex: Female
  Weight: 53.5244 kg

DRUGS (10)
  1. RIBAVIRIN [Concomitant]
  2. OMEPRAZOLE [Concomitant]
  3. HYDROXYZINE [Concomitant]
  4. PEGASYS [Concomitant]
  5. MEPHYTON (PHYTOMENADIONE) [Concomitant]
  6. LISINOPRIL [Concomitant]
  7. FEXOFENADINE HCL [Concomitant]
  8. CALCIUM WITH VITAMIN D (CALCIUM D SAUTER /01272001/) [Concomitant]
  9. INCIVEK [Suspect]
     Dosage: 2250 MG (750 MG, 3 IN 1 D), ORAL
     Route: 048
     Dates: start: 20110928
  10. VITAMIN D [Concomitant]

REACTIONS (5)
  - OROPHARYNGEAL PAIN [None]
  - COUGH [None]
  - DRUG DOSE OMISSION [None]
  - PRURITUS [None]
  - NASOPHARYNGITIS [None]
